FAERS Safety Report 5275723-5 (Version None)
Quarter: 2007Q1

REPORT INFORMATION
  Report Type: 
  Country: None (occurrence: None)
  Receive Date: 20061213
  Receipt Date: 20040318
  Transmission Date: 20070707
  Serious: No
  Sender: FDA-Public Use
  Company Number: 2004UW05302

PATIENT
  Age: 20 Year
  Sex: Male

DRUGS (4)
  1. SEROQUEL [Suspect]
     Dosage: 25 MG PO
     Route: 048
     Dates: start: 20040223
  2. ARICEPT [Suspect]
     Dates: start: 20040223
  3. LITHIUM CARBONATE [Suspect]
     Dates: start: 20040223
  4. TRILEPTAL [Suspect]
     Dosage: 300 MG
     Dates: start: 20040223

REACTIONS (1)
  - CONVULSION [None]
